FAERS Safety Report 23633834 (Version 2)
Quarter: 2024Q1

REPORT INFORMATION
  Report Type: Spontaneous
  Country: BR (occurrence: BR)
  Receive Date: 20240314
  Receipt Date: 20240325
  Transmission Date: 20240410
  Serious: Yes (Other)
  Sender: FDA-Public Use
  Company Number: BR-TAKEDA-2024TUS020109

PATIENT
  Sex: Female
  Weight: 94 kg

DRUGS (10)
  1. MESALAMINE [Suspect]
     Active Substance: MESALAMINE
     Indication: Colitis ulcerative
     Dosage: 800 MILLIGRAM, BID
     Route: 065
     Dates: start: 2008
  2. MESALAMINE [Suspect]
     Active Substance: MESALAMINE
     Indication: Colitis ulcerative
     Dosage: UNK UNK, BID
     Route: 065
     Dates: start: 2008
  3. MESALAMINE [Suspect]
     Active Substance: MESALAMINE
     Dosage: UNK UNK, BID
     Route: 065
  4. MESALAMINE [Suspect]
     Active Substance: MESALAMINE
     Dosage: 1200 MILLIGRAM, TID
     Route: 065
  5. MESALAMINE [Suspect]
     Active Substance: MESALAMINE
     Dosage: 1200 MILLIGRAM, QID
     Route: 065
  6. METICORTEN [Concomitant]
     Active Substance: PREDNISONE
     Dosage: 20 MILLIGRAM, BID
  7. ROSUVASTATIN CALCIUM [Concomitant]
     Active Substance: ROSUVASTATIN CALCIUM
     Dosage: UNK
  8. BIVOLET [Concomitant]
     Dosage: UNK
  9. LOSARTAN POTASSIUM [Concomitant]
     Active Substance: LOSARTAN POTASSIUM
     Dosage: UNK
  10. Trezor [Concomitant]
     Dosage: UNK

REACTIONS (10)
  - Colitis ulcerative [Unknown]
  - Drug ineffective [Unknown]
  - Condition aggravated [Unknown]
  - Product odour abnormal [Unknown]
  - Product residue present [Unknown]
  - Menopause [Unknown]
  - Urinary tract infection [Unknown]
  - Wrong technique in product usage process [Unknown]
  - Diarrhoea [Unknown]
  - Muscle spasms [Unknown]

NARRATIVE: CASE EVENT DATE: 20130101
